FAERS Safety Report 5926843-0 (Version None)
Quarter: 2008Q4

REPORT INFORMATION
  Report Type: 
  Country: None (occurrence: None)
  Receive Date: 20081017
  Receipt Date: 20081009
  Transmission Date: 20090506
  Serious: Yes (Hospitalization)
  Sender: FDA-Public Use
  Company Number: 2005BI007482

PATIENT
  Sex: Female

DRUGS (1)
  1. AVONEX [Suspect]
     Indication: MULTIPLE SCLEROSIS
     Dosage: QW;IM; 30 UG;QW;IM
     Route: 030
     Dates: start: 20030621

REACTIONS (4)
  - BREAST CANCER FEMALE [None]
  - FALL [None]
  - N-TELOPEPTIDE URINE INCREASED [None]
  - RIB FRACTURE [None]
